FAERS Safety Report 18623105 (Version 1)
Quarter: 2020Q4

REPORT INFORMATION
  Report Type: Spontaneous
  Country: US (occurrence: US)
  Receive Date: 20201216
  Receipt Date: 20201216
  Transmission Date: 20210114
  Serious: No
  Sender: FDA-Public Use
  Company Number: None

PATIENT
  Age: 75 Year
  Sex: Male
  Weight: 91.8 kg

DRUGS (19)
  1. ABIRATERONE. [Suspect]
     Active Substance: ABIRATERONE ACETATE
     Indication: NEOPLASM MALIGNANT
     Route: 048
     Dates: start: 20190129, end: 20201216
  2. MORPHINE SULFATE ER [Concomitant]
     Active Substance: MORPHINE SULFATE
  3. ALLOPURINOL. [Concomitant]
     Active Substance: ALLOPURINOL
  4. LOSARTAN POTASSIUM. [Concomitant]
     Active Substance: LOSARTAN POTASSIUM
  5. AMLODIPINE BESYLATE. [Concomitant]
     Active Substance: AMLODIPINE BESYLATE
  6. BAYER ASPIRIN EC LOW DOSE [Concomitant]
  7. XGEVA [Concomitant]
     Active Substance: DENOSUMAB
  8. TADALAFIL. [Concomitant]
     Active Substance: TADALAFIL
  9. TRIAMTERENE-HCTZ [Concomitant]
     Active Substance: HYDROCHLOROTHIAZIDE\TRIAMTERENE
  10. ONE DAILY COMPLETE [Concomitant]
  11. EZETIMIBE-SIMVASTATIN [Concomitant]
     Active Substance: EZETIMIBE\SIMVASTATIN
  12. CEPHALEXIN. [Concomitant]
     Active Substance: CEPHALEXIN
  13. CITRACAL PLUS [Concomitant]
     Active Substance: CALCIUM\MAGNESIUM\VITAMIN D\ZINC
  14. MAGNESIUM OXIDE. [Concomitant]
     Active Substance: MAGNESIUM OXIDE
  15. LUPRON DEPOT (6-MONTH) [Concomitant]
  16. PREDNISONE. [Concomitant]
     Active Substance: PREDNISONE
  17. INDOMETHACIN. [Concomitant]
     Active Substance: INDOMETHACIN
  18. BYSTOLIC [Concomitant]
     Active Substance: NEBIVOLOL HYDROCHLORIDE
  19. OXYBUTYNIN CHLORIDE. [Concomitant]
     Active Substance: OXYBUTYNIN CHLORIDE

REACTIONS (1)
  - Disease progression [None]

NARRATIVE: CASE EVENT DATE: 20201216
